FAERS Safety Report 20392602 (Version 3)
Quarter: 2022Q1

REPORT INFORMATION
  Report Type: Report from Study
  Country: MX (occurrence: MX)
  Receive Date: 20220128
  Receipt Date: 20220212
  Transmission Date: 20220423
  Serious: Yes (Other)
  Sender: FDA-Public Use
  Company Number: MX-TAKEDA-MX202007399

PATIENT
  Age: 10 Year
  Sex: Male
  Weight: 37 kg

DRUGS (5)
  1. IDURSULFASE [Suspect]
     Active Substance: IDURSULFASE
     Indication: Mucopolysaccharidosis II
     Dosage: 18 MILLIGRAM, 1/WEEK
     Route: 042
     Dates: start: 20130703
  2. IDURSULFASE [Suspect]
     Active Substance: IDURSULFASE
     Dosage: 3 DOSAGE FORM, 1/WEEK
     Route: 042
     Dates: start: 20130703
  3. IDURSULFASE [Suspect]
     Active Substance: IDURSULFASE
     Dosage: 2.5 DOSAGE FORM, 1/WEEK
     Route: 042
     Dates: start: 20200211
  4. IDURSULFASE [Suspect]
     Active Substance: IDURSULFASE
     Dosage: UNK
     Route: 042
     Dates: start: 20200225
  5. IDURSULFASE [Suspect]
     Active Substance: IDURSULFASE
     Dosage: UNK, 1/WEEK
     Route: 042
     Dates: start: 20200324

REACTIONS (8)
  - Respiratory disorder [Not Recovered/Not Resolved]
  - Pyrexia [Not Recovered/Not Resolved]
  - Pharyngitis [Not Recovered/Not Resolved]
  - COVID-19 [Recovered/Resolved]
  - Cough [Not Recovered/Not Resolved]
  - Product dose omission issue [Unknown]
  - Product availability issue [Unknown]
  - Inappropriate schedule of product administration [Not Recovered/Not Resolved]

NARRATIVE: CASE EVENT DATE: 20200218
